FAERS Safety Report 8988717 (Version 1)
Quarter: 2012Q4

REPORT INFORMATION
  Report Type: Report from Study
  Country: DK (occurrence: DK)
  Receive Date: 20121228
  Receipt Date: 20121228
  Transmission Date: 20130627
  Serious: Yes (Death, Other)
  Sender: FDA-Public Use
  Company Number: DK-ROCHE-1152577

PATIENT

DRUGS (3)
  1. CAPECITABINE [Suspect]
     Indication: GASTRIC CANCER
     Dosage: Date of last dose prior to SAE: 30/Sep/2010
     Route: 065
     Dates: start: 20100624
  2. DOCETAXEL [Suspect]
     Indication: GASTRIC CANCER
     Route: 065
  3. OXALIPLATIN [Suspect]
     Indication: GASTRIC CANCER
     Route: 065

REACTIONS (2)
  - Haemorrhage [Fatal]
  - Melaena [Fatal]
